FAERS Safety Report 21911804 (Version 1)
Quarter: 2023Q1

REPORT INFORMATION
  Report Type: Spontaneous
  Country: US (occurrence: US)
  Receive Date: 20230125
  Receipt Date: 20230125
  Transmission Date: 20230417
  Serious: No
  Sender: FDA-Public Use
  Company Number: US-AMGEN-USASP2023010088

PATIENT
  Sex: Male

DRUGS (1)
  1. RITUXIMAB [Suspect]
     Active Substance: RITUXIMAB
     Indication: Monkeypox
     Dosage: INDUCTION DOSING WITH TWO DOSES OF 1 G SEPARATED BY TWO WEEKS
     Route: 065

REACTIONS (1)
  - Off label use [Unknown]
